FAERS Safety Report 6400515-0 (Version None)
Quarter: 2009Q4

REPORT INFORMATION
  Report Type: 
  Country: None (occurrence: None)
  Receive Date: 20091013
  Receipt Date: 20091013
  Transmission Date: 20100525
  Serious: No
  Sender: FDA-Public Use
  Company Number: None

PATIENT
  Age: 67 Year
  Sex: Female
  Weight: 52.1637 kg

DRUGS (1)
  1. NITAZOXANIDE [Suspect]
     Indication: CLOSTRIDIAL INFECTION
     Dosage: 500 MG BID PO
     Route: 048
     Dates: start: 20090930, end: 20091004

REACTIONS (3)
  - CHROMATURIA [None]
  - ORAL FUNGAL INFECTION [None]
  - VULVOVAGINAL PAIN [None]
